FAERS Safety Report 10251582 (Version 1)
Quarter: 2014Q2

REPORT INFORMATION
  Report Type: Spontaneous
  Country: FR (occurrence: FR)
  Receive Date: 20140623
  Receipt Date: 20140623
  Transmission Date: 20141212
  Serious: Yes (Hospitalization)
  Sender: FDA-Public Use
  Company Number: FR-ROCHE-1421976

PATIENT
  Age: 53 Year
  Sex: Female
  Weight: 70 kg

DRUGS (3)
  1. TAMIFLU [Suspect]
     Indication: INFLUENZA
     Route: 065
     Dates: start: 20140314, end: 20140323
  2. IDARUBICIN [Concomitant]
     Route: 065
     Dates: start: 201402
  3. ARACYTINE [Concomitant]
     Route: 065
     Dates: start: 201402

REACTIONS (1)
  - Bradycardia [Recovered/Resolved]
